FAERS Safety Report 5457024-5 (Version None)
Quarter: 2007Q3

REPORT INFORMATION
  Report Type: 
  Country: None (occurrence: None)
  Receive Date: 20070918
  Receipt Date: 20070430
  Transmission Date: 20080115
  Serious: Yes (Other)
  Sender: FDA-Public Use
  Company Number: US-ASTRAZENECA-2006UW27713

PATIENT
  Age: 570 Month
  Sex: Female
  Weight: 113.2 kg

DRUGS (7)
  1. SEROQUEL [Suspect]
     Indication: BIPOLAR I DISORDER
     Route: 048
     Dates: start: 20020101
  2. SEROQUEL [Suspect]
     Indication: BIPOLAR DISORDER
     Route: 048
     Dates: start: 20020101
  3. SEROQUEL [Suspect]
     Indication: ANXIETY
     Route: 048
     Dates: start: 20020101
  4. ZYPREXA [Concomitant]
  5. KLONOPIN [Concomitant]
  6. ZOLOFT [Concomitant]
  7. AMBIEN [Concomitant]

REACTIONS (1)
  - PANCREATITIS [None]
